FAERS Safety Report 25676778 (Version 1)
Quarter: 2025Q3

REPORT INFORMATION
  Report Type: Spontaneous
  Country: US (occurrence: None)
  Receive Date: 20250812
  Receipt Date: 20250812
  Transmission Date: 20251020
  Serious: Yes (Life-Threatening, Hospitalization, Disabling)
  Sender: FDA-CTU
  Company Number: None

PATIENT
  Age: 66 Year
  Sex: Male
  Weight: 85.9 kg

DRUGS (1)
  1. DABIGATRAN [Suspect]
     Active Substance: DABIGATRAN
     Indication: Atrial fibrillation
     Dosage: FREQUENCY : TWICE A DAY;?
     Route: 048
     Dates: start: 20240711, end: 20250620

REACTIONS (13)
  - Road traffic accident [None]
  - Face injury [None]
  - Skin abrasion [None]
  - Scalp haematoma [None]
  - Subdural haematoma [None]
  - Contusion [None]
  - Cerebral haemorrhage [None]
  - Subarachnoid haemorrhage [None]
  - Acute respiratory failure [None]
  - Cervical vertebral fracture [None]
  - Rib fracture [None]
  - Scapula fracture [None]
  - Clavicle fracture [None]

NARRATIVE: CASE EVENT DATE: 20250620
